FAERS Safety Report 7128506-5 (Version None)
Quarter: 2010Q4

REPORT INFORMATION
  Report Type: 
  Country: None (occurrence: None)
  Receive Date: 20101130
  Receipt Date: 20101120
  Transmission Date: 20110411
  Serious: Yes (Death)
  Sender: FDA-Public Use
  Company Number: BR-ACTELION-A-CH2010-41918

PATIENT
  Sex: Male

DRUGS (3)
  1. ZAVESCA [Suspect]
     Indication: NIEMANN-PICK DISEASE
     Dosage: 100 MG, OD
     Route: 048
     Dates: end: 20100716
  2. ZAVESCA [Suspect]
     Dosage: 50 MG, OD
     Route: 048
     Dates: start: 20100301
  3. ACETYLCYSTEINE [Concomitant]

REACTIONS (7)
  - DEATH [None]
  - DECREASED ACTIVITY [None]
  - DERMATITIS [None]
  - MALNUTRITION [None]
  - OEDEMA PERIPHERAL [None]
  - SKIN LESION [None]
  - WEIGHT DECREASED [None]
